APPROVED DRUG PRODUCT: VENLAFAXINE HYDROCHLORIDE
Active Ingredient: VENLAFAXINE HYDROCHLORIDE
Strength: EQ 150MG BASE
Dosage Form/Route: CAPSULE, EXTENDED RELEASE;ORAL
Application: A090899 | Product #003
Applicant: TORRENT PHARMACEUTICALS LTD
Approved: Jun 1, 2011 | RLD: No | RS: No | Type: DISCN